FAERS Safety Report 7504159-9 (Version None)
Quarter: 2011Q2

REPORT INFORMATION
  Report Type: 
  Country: None (occurrence: None)
  Receive Date: 20110525
  Receipt Date: 20110512
  Transmission Date: 20111010
  Serious: Yes (Hospitalization, Disabling)
  Sender: FDA-Public Use
  Company Number: US-ELI_LILLY_AND_COMPANY-US201105005052

PATIENT
  Age: 89 Year
  Sex: Female

DRUGS (1)
  1. FORTEO [Suspect]
     Dosage: UNK, UNKNOWN
     Route: 065

REACTIONS (13)
  - HEADACHE [None]
  - COMPRESSION FRACTURE [None]
  - BLOOD GLUCOSE INCREASED [None]
  - DECREASED APPETITE [None]
  - INTENTIONAL DRUG MISUSE [None]
  - ABNORMAL DREAMS [None]
  - INJECTION SITE HAEMATOMA [None]
  - EYE SWELLING [None]
  - BLOOD CALCIUM INCREASED [None]
  - FATIGUE [None]
  - CONFUSIONAL STATE [None]
  - GASTRIC ULCER [None]
  - SLEEP DISORDER [None]
